FAERS Safety Report 9753178 (Version 1)
Quarter: 2013Q4

REPORT INFORMATION
  Report Type: Spontaneous
  Country: US (occurrence: US)
  Receive Date: 20131213
  Receipt Date: 20131213
  Transmission Date: 20140711
  Serious: No
  Sender: FDA-Public Use
  Company Number: US-GILEAD-2010-0027214

PATIENT
  Sex: Female
  Weight: 96.61 kg

DRUGS (9)
  1. LETAIRIS [Suspect]
     Indication: PULMONARY ARTERIAL HYPERTENSION
     Route: 048
  2. PREDNISONE [Concomitant]
  3. FUROSEMIDE [Concomitant]
  4. DIOVAN [Concomitant]
  5. TRAMADOL HCL [Concomitant]
  6. HYDROCO/APAP [Concomitant]
  7. KLOR-CON [Concomitant]
  8. FE TABS [Concomitant]
  9. MELATONIN [Concomitant]

REACTIONS (1)
  - Haemoglobin decreased [Unknown]
